FAERS Safety Report 6336069-7 (Version None)
Quarter: 2009Q3

REPORT INFORMATION
  Report Type: 
  Country: None (occurrence: None)
  Receive Date: 20090901
  Receipt Date: 20071015
  Transmission Date: 20100115
  Serious: Yes (Other)
  Sender: FDA-Public Use
  Company Number: US-ASTRAZENECA-2007UW12135

PATIENT
  Age: 487 Month
  Sex: Female
  Weight: 111.1 kg

DRUGS (50)
  1. SEROQUEL [Suspect]
     Indication: BIPOLAR DISORDER
     Route: 048
     Dates: start: 20010101
  2. SEROQUEL [Suspect]
     Indication: DEPRESSION
     Route: 048
     Dates: start: 20010101
  3. SEROQUEL [Suspect]
     Indication: SCHIZOPHRENIA
     Route: 048
     Dates: start: 20010101
  4. SEROQUEL [Suspect]
     Indication: SLEEP DISORDER
     Route: 048
     Dates: start: 20010101
  5. SEROQUEL [Suspect]
     Dosage: STRENGTH-25MG, 50MG, 100MG, 200MG, 400MG DOSE-100MG-800MG
     Route: 048
     Dates: start: 20010629
  6. SEROQUEL [Suspect]
     Dosage: STRENGTH-25MG, 50MG, 100MG, 200MG, 400MG DOSE-100MG-800MG
     Route: 048
     Dates: start: 20010629
  7. SEROQUEL [Suspect]
     Dosage: STRENGTH-25MG, 50MG, 100MG, 200MG, 400MG DOSE-100MG-800MG
     Route: 048
     Dates: start: 20010629
  8. SEROQUEL [Suspect]
     Dosage: STRENGTH-25MG, 50MG, 100MG, 200MG, 400MG DOSE-100MG-800MG
     Route: 048
     Dates: start: 20010629
  9. SEROQUEL [Suspect]
     Route: 048
     Dates: start: 20031031, end: 20040828
  10. SEROQUEL [Suspect]
     Route: 048
     Dates: start: 20031031, end: 20040828
  11. SEROQUEL [Suspect]
     Route: 048
     Dates: start: 20031031, end: 20040828
  12. SEROQUEL [Suspect]
     Route: 048
     Dates: start: 20031031, end: 20040828
  13. SEROQUEL [Suspect]
     Route: 048
     Dates: start: 20040926, end: 20041229
  14. SEROQUEL [Suspect]
     Route: 048
     Dates: start: 20040926, end: 20041229
  15. SEROQUEL [Suspect]
     Route: 048
     Dates: start: 20040926, end: 20041229
  16. SEROQUEL [Suspect]
     Route: 048
     Dates: start: 20040926, end: 20041229
  17. SEROQUEL [Suspect]
     Route: 048
     Dates: start: 20050114, end: 20050829
  18. SEROQUEL [Suspect]
     Route: 048
     Dates: start: 20050114, end: 20050829
  19. SEROQUEL [Suspect]
     Route: 048
     Dates: start: 20050114, end: 20050829
  20. SEROQUEL [Suspect]
     Route: 048
     Dates: start: 20050114, end: 20050829
  21. SEROQUEL [Suspect]
     Route: 048
     Dates: start: 20050922, end: 20051022
  22. SEROQUEL [Suspect]
     Route: 048
     Dates: start: 20050922, end: 20051022
  23. SEROQUEL [Suspect]
     Route: 048
     Dates: start: 20050922, end: 20051022
  24. SEROQUEL [Suspect]
     Route: 048
     Dates: start: 20050922, end: 20051022
  25. SEROQUEL [Suspect]
     Route: 048
     Dates: start: 20051130, end: 20051230
  26. SEROQUEL [Suspect]
     Route: 048
     Dates: start: 20051130, end: 20051230
  27. SEROQUEL [Suspect]
     Route: 048
     Dates: start: 20051130, end: 20051230
  28. SEROQUEL [Suspect]
     Route: 048
     Dates: start: 20051130, end: 20051230
  29. SEROQUEL [Suspect]
     Route: 048
     Dates: start: 20060131, end: 20070119
  30. SEROQUEL [Suspect]
     Route: 048
     Dates: start: 20060131, end: 20070119
  31. SEROQUEL [Suspect]
     Route: 048
     Dates: start: 20060131, end: 20070119
  32. SEROQUEL [Suspect]
     Route: 048
     Dates: start: 20060131, end: 20070119
  33. TRILEPTAL [Concomitant]
     Dosage: STRENGTH-150MG, 300MG, 600MG DOSE-300MG-1200MG
     Route: 048
     Dates: start: 20010629
  34. TRILEPTAL [Concomitant]
     Route: 048
  35. EFFEXOR XR [Concomitant]
     Route: 048
     Dates: start: 20010629
  36. EFFEXOR XR [Concomitant]
     Route: 048
  37. ATROVENT [Concomitant]
     Dates: start: 20010629
  38. AEROBID [Concomitant]
     Dates: start: 20010629
  39. MAXZIDE [Concomitant]
     Dates: start: 20010629
  40. TOPROL-XL [Concomitant]
     Route: 048
     Dates: start: 20020904
  41. THEO-DUR [Concomitant]
     Route: 048
     Dates: start: 20010629
  42. PAXIL [Concomitant]
     Route: 048
     Dates: start: 20020904
  43. TAGAMET [Concomitant]
     Route: 048
     Dates: start: 20020904
  44. DIOVAN HCT [Concomitant]
     Dosage: STRENGTH-80/12.5, 160/12.5MG DOSE-80/12.5, 160/12.5 MG DAILY
     Route: 048
     Dates: start: 20020904
  45. AMBIEN [Concomitant]
     Dates: start: 20041215
  46. DEPAKOTE [Concomitant]
  47. LISINOPRIL AND HYDROCHLOROTHIAZIDE [Concomitant]
     Dosage: STRENGTH-20/12.5
     Dates: start: 20060619
  48. ADVAIR HFA [Concomitant]
     Dates: start: 20041215
  49. SPIRIVA [Concomitant]
     Dates: start: 20041215
  50. ROBITUSSIN [Concomitant]
     Dates: start: 20041215

REACTIONS (3)
  - DIABETES MELLITUS INADEQUATE CONTROL [None]
  - NEUROPATHY PERIPHERAL [None]
  - TYPE 2 DIABETES MELLITUS [None]
